FAERS Safety Report 20098656 (Version 1)
Quarter: 2021Q4

REPORT INFORMATION
  Report Type: Spontaneous
  Country: US (occurrence: US)
  Receive Date: 20211122
  Receipt Date: 20211122
  Transmission Date: 20220303
  Serious: Yes (Hospitalization, Other)
  Sender: FDA-Public Use
  Company Number: US-BRACCO-2021US03632

PATIENT
  Age: 19 Year
  Sex: Male

DRUGS (3)
  1. LUMASON [Suspect]
     Active Substance: SULFUR HEXAFLUORIDE
     Indication: Stress echocardiogram
     Dosage: 2 ML, SINGLE,RECONSTITUTED PER PI DUE TO SUBOPTIMAL ENDOCARDIAL BORDER DEFINITION
     Route: 065
     Dates: start: 20210819, end: 20210819
  2. LUMASON [Suspect]
     Active Substance: SULFUR HEXAFLUORIDE
     Indication: Stress echocardiogram
     Dosage: 2 ML, SINGLE,RECONSTITUTED PER PI DUE TO SUBOPTIMAL ENDOCARDIAL BORDER DEFINITION
     Route: 065
     Dates: start: 20210819, end: 20210819
  3. LUMASON [Suspect]
     Active Substance: SULFUR HEXAFLUORIDE
     Indication: Stress echocardiogram
     Dosage: 2 ML, SINGLE,RECONSTITUTED PER PI DUE TO SUBOPTIMAL ENDOCARDIAL BORDER DEFINITION
     Route: 065
     Dates: start: 20210819, end: 20210819

REACTIONS (5)
  - Angioedema [Recovered/Resolved]
  - Rash [Recovered/Resolved]
  - Hypotension [Recovered/Resolved]
  - Headache [Recovered/Resolved]
  - Nausea [Recovered/Resolved]

NARRATIVE: CASE EVENT DATE: 20210819
